FAERS Safety Report 7503667-4 (Version None)
Quarter: 2011Q2

REPORT INFORMATION
  Report Type: 
  Country: None (occurrence: None)
  Receive Date: 20110524
  Receipt Date: 20110524
  Transmission Date: 20111010
  Serious: Yes (Other)
  Sender: FDA-Public Use
  Company Number: None

PATIENT
  Age: 29 Year
  Sex: Male

DRUGS (5)
  1. HYDROCHLOROTHIAZIDE [Concomitant]
  2. TRAZODONE HCL [Concomitant]
  3. AMLODIPINE [Concomitant]
  4. OLANZAPINE [Suspect]
     Indication: BIPOLAR I DISORDER
     Dosage: 15 MG BID PO
     Route: 048
     Dates: start: 20110308, end: 20110401
  5. LORAZEPAM [Concomitant]

REACTIONS (5)
  - TREATMENT NONCOMPLIANCE [None]
  - LIPASE DECREASED [None]
  - LIVER FUNCTION TEST ABNORMAL [None]
  - HELICOBACTER TEST POSITIVE [None]
  - HYPERTENSION [None]
